FAERS Safety Report 5284818-1 (Version None)
Quarter: 2007Q1

REPORT INFORMATION
  Report Type: 
  Country: None (occurrence: None)
  Receive Date: 20070328
  Receipt Date: 20070319
  Transmission Date: 20070707
  Serious: Yes (Hospitalization)
  Sender: FDA-Public Use
  Company Number: 2007-156002-NL

PATIENT
  Age: 41 Year
  Sex: Male

DRUGS (4)
  1. MIRTAZAPINE [Suspect]
     Dosage: 30 MG/45 MG ORAL
     Route: 048
     Dates: end: 20060713
  2. MIRTAZAPINE [Suspect]
     Dosage: 30 MG/45 MG ORAL
     Route: 048
     Dates: start: 20060714, end: 20060717
  3. LEVOTHYROXINE SODIUM [Concomitant]
  4. METOPROLOL SUCCINATE [Concomitant]

REACTIONS (3)
  - ALCOHOL POISONING [None]
  - HEPATITIS TOXIC [None]
  - METASTASES TO LIVER [None]
